FAERS Safety Report 6857531-4 (Version None)
Quarter: 2010Q3

REPORT INFORMATION
  Report Type: 
  Country: None (occurrence: None)
  Receive Date: 20100719
  Receipt Date: 20080127
  Transmission Date: 20110219
  Serious: Yes (Hospitalization)
  Sender: FDA-Public Use
  Company Number: US-PFIZER INC-2008008549

PATIENT
  Sex: Female
  Weight: 64 kg

DRUGS (37)
  1. CHANTIX [Suspect]
     Indication: SMOKING CESSATION THERAPY
     Route: 048
     Dates: start: 20080101
  2. VITAMIN C [Concomitant]
  3. IRON [Concomitant]
  4. MULTI-VITAMINS [Concomitant]
  5. WARFARIN SODIUM [Concomitant]
  6. ALL OTHER THERAPEUTIC PRODUCTS [Concomitant]
  7. ALL OTHER THERAPEUTIC PRODUCTS [Concomitant]
  8. DIGITEK [Concomitant]
  9. DIGITEK [Concomitant]
  10. SEROQUEL [Concomitant]
  11. SEROQUEL [Concomitant]
  12. SIMVASTATIN [Concomitant]
  13. SIMVASTATIN [Concomitant]
  14. FUROSEMIDE [Concomitant]
  15. FUROSEMIDE [Concomitant]
  16. BENAZEPRIL HYDROCHLORIDE [Concomitant]
  17. BENAZEPRIL HYDROCHLORIDE [Concomitant]
  18. CITALOPRAM HYDROBROMIDE [Concomitant]
  19. CITALOPRAM HYDROBROMIDE [Concomitant]
  20. METOPROLOL [Concomitant]
  21. METOPROLOL [Concomitant]
  22. LEVOTHYROXINE SODIUM [Concomitant]
  23. LEVOTHYROXINE SODIUM [Concomitant]
  24. OXYCODONE HCL [Concomitant]
     Indication: PAIN
  25. OXYCODONE HCL [Concomitant]
  26. GABAPENTIN [Concomitant]
  27. GABAPENTIN [Concomitant]
  28. ALBUTEROL [Concomitant]
  29. ALBUTEROL [Concomitant]
  30. ADVAIR DISKUS 100/50 [Concomitant]
  31. ADVAIR DISKUS 100/50 [Concomitant]
  32. SPIRIVA [Concomitant]
  33. SPIRIVA [Concomitant]
  34. ACETYLSALICYLIC ACID [Concomitant]
  35. CALCIUM [Concomitant]
  36. MAGNESIUM [Concomitant]
  37. VITAMIN D [Concomitant]

REACTIONS (1)
  - MYOCARDIAL INFARCTION [None]
